FAERS Safety Report 7158544-8 (Version None)
Quarter: 2010Q4

REPORT INFORMATION
  Report Type: 
  Country: None (occurrence: None)
  Receive Date: 20101214
  Receipt Date: 20100405
  Transmission Date: 20110411
  Serious: No
  Sender: FDA-Public Use
  Company Number: US-ASTRAZENECA-2010SE23018

PATIENT
  Age: 819 Month
  Sex: Female
  Weight: 81.6 kg

DRUGS (2)
  1. CRESTOR [Suspect]
     Indication: HYPERCHOLESTEROLAEMIA
     Route: 048
  2. NIASPAN [Suspect]
     Indication: HYPERCHLORAEMIA
     Route: 048

REACTIONS (6)
  - ERYTHEMA [None]
  - EYE SWELLING [None]
  - FLUSHING [None]
  - PAIN IN EXTREMITY [None]
  - SWELLING FACE [None]
  - WRONG TECHNIQUE IN DRUG USAGE PROCESS [None]
